FAERS Safety Report 5285211-8 (Version None)
Quarter: 2007Q1

REPORT INFORMATION
  Report Type: 
  Country: None (occurrence: None)
  Receive Date: 20061229
  Receipt Date: 20060918
  Transmission Date: 20070707
  Serious: Yes (Other)
  Sender: FDA-Public Use
  Company Number: 2006UW18179

PATIENT
  Sex: Male

DRUGS (1)
  1. CRESTOR [Suspect]
     Dates: start: 20060601

REACTIONS (1)
  - IRRITABILITY [None]
